FAERS Safety Report 4333188-1 (Version None)
Quarter: 2004Q2

REPORT INFORMATION
  Report Type: 
  Country: None (occurrence: None)
  Receive Date: 20040402
  Receipt Date: 20040329
  Transmission Date: 20050107
  Serious: Yes (Disabling, Other)
  Sender: FDA-Public Use
  Company Number: DEWYE670929MAR04

PATIENT
  Age: 66 Year
  Sex: Male

DRUGS (1)
  1. TAZOBAC (PIPERACILLIN/TAXOBACTAM, INJECTION) [Suspect]
     Indication: PNEUMONIA
     Dosage: 4. 5 G 3X PER 1 DAY
     Route: 042
     Dates: start: 20040309, end: 20040315

REACTIONS (2)
  - ATAXIA [None]
  - ATTENTION DEFICIT/HYPERACTIVITY DISORDER [None]
